FAERS Safety Report 19955110 (Version 9)
Quarter: 2025Q3

REPORT INFORMATION
  Report Type: Report from Study
  Country: EU (occurrence: EU)
  Receive Date: 20211014
  Receipt Date: 20250905
  Transmission Date: 20251020
  Serious: Yes (Hospitalization, Other)
  Sender: PURDUE
  Company Number: EU-ROCHE-2091662

PATIENT
  Age: 52 Year
  Sex: Male
  Weight: 90 kg

DRUGS (53)
  1. OXYCODONE HYDROCHLORIDE [Suspect]
     Active Substance: OXYCODONE HYDROCHLORIDE
     Indication: Product used for unknown indication
     Route: 065
  2. DOMINAL (PROTHIPENDYL HYDROCHLORIDE) [Suspect]
     Active Substance: PROTHIPENDYL HYDROCHLORIDE
     Indication: Product used for unknown indication
     Route: 065
  3. OCRELIZUMAB [Suspect]
     Active Substance: OCRELIZUMAB
     Indication: Relapsing-remitting multiple sclerosis
     Dosage: 600 MG, DAILY
     Route: 042
     Dates: start: 20210305
  4. OCRELIZUMAB [Suspect]
     Active Substance: OCRELIZUMAB
     Dosage: 600 MG, TID
     Route: 042
     Dates: start: 20210907
  5. OCRELIZUMAB [Suspect]
     Active Substance: OCRELIZUMAB
     Route: 042
     Dates: start: 20180319, end: 20180319
  6. OCRELIZUMAB [Suspect]
     Active Substance: OCRELIZUMAB
     Route: 042
     Dates: start: 20180305, end: 20180305
  7. OCRELIZUMAB [Suspect]
     Active Substance: OCRELIZUMAB
     Dosage: 600 MG, MONTHLY
     Route: 042
     Dates: start: 20190902
  8. OCRELIZUMAB [Suspect]
     Active Substance: OCRELIZUMAB
     Dosage: 600 MG, MONTHLY (DOSAGE TEXT: 11/SEP/2018 AND 02/SEP/2019, RECEIVED SAME SUBSEQUENT DOSE OF OCRELIZU
     Route: 042
     Dates: start: 20180821, end: 20190311
  9. OCRELIZUMAB [Suspect]
     Active Substance: OCRELIZUMAB
     Dosage: 600 MG, EVERY 6 MONTH
     Route: 042
     Dates: start: 20200306
  10. OCRELIZUMAB [Suspect]
     Active Substance: OCRELIZUMAB
     Route: 042
     Dates: start: 20180228
  11. OCRELIZUMAB [Suspect]
     Active Substance: OCRELIZUMAB
     Dosage: 600 MILLIGRAM, EVERY 6 MONTH
     Route: 042
     Dates: start: 20200306
  12. CORTISONE [Suspect]
     Active Substance: CORTISONE
     Indication: Premedication
     Route: 042
     Dates: start: 20190311, end: 20190311
  13. CORTISONE [Suspect]
     Active Substance: CORTISONE
     Route: 042
     Dates: start: 20190311, end: 20190311
  14. CORTISONE [Suspect]
     Active Substance: CORTISONE
     Route: 042
     Dates: start: 20210625
  15. CORTISONE [Suspect]
     Active Substance: CORTISONE
     Route: 065
  16. CORTISONE [Suspect]
     Active Substance: CORTISONE
     Route: 042
  17. MODERNA COVID-19 VACCINE [Suspect]
     Active Substance: ELASOMERAN
     Indication: COVID-19 immunisation
     Route: 065
     Dates: start: 20210526
  18. MODERNA COVID-19 VACCINE [Suspect]
     Active Substance: ELASOMERAN
     Route: 065
     Dates: start: 20210720
  19. ACETAMINOPHEN [Concomitant]
     Active Substance: ACETAMINOPHEN
     Indication: Product used for unknown indication
     Route: 065
  20. AMLODIPINE [Concomitant]
     Active Substance: AMLODIPINE BESYLATE
     Indication: Product used for unknown indication
     Dosage: 5 MG, DAILY
     Route: 065
  21. AMLODIPINE [Concomitant]
     Active Substance: AMLODIPINE BESYLATE
     Route: 065
  22. CANDESARTAN [Concomitant]
     Active Substance: CANDESARTAN
     Indication: Pain
     Dosage: 16 MILLIGRAM, BID (1-1-0)
     Route: 065
  23. CANDESARTAN [Concomitant]
     Active Substance: CANDESARTAN
     Dosage: 16 MILLIGRAM, BID (14-16 MG)
     Route: 065
     Dates: start: 20180227
  24. CANDESARTAN [Concomitant]
     Active Substance: CANDESARTAN
     Dosage: 16 MILLIGRAM, BID
     Route: 065
  25. CANDESARTAN [Concomitant]
     Active Substance: CANDESARTAN
     Route: 065
  26. CANDESARTAN [Concomitant]
     Active Substance: CANDESARTAN
     Route: 065
  27. CANDESARTAN [Concomitant]
     Active Substance: CANDESARTAN
     Route: 065
     Dates: start: 20180227
  28. MIRTAZAPINE [Concomitant]
     Active Substance: MIRTAZAPINE
     Indication: Product used for unknown indication
     Route: 065
  29. DULOXETINE [Concomitant]
     Active Substance: DULOXETINE
     Indication: Depression
     Dosage: 30 MILLIGRAM, DAILY
     Route: 048
     Dates: start: 20180710
  30. DULOXETINE [Concomitant]
     Active Substance: DULOXETINE
     Dosage: 30 MILLIGRAM, DAILY
     Route: 048
  31. DULOXETINE [Concomitant]
     Active Substance: DULOXETINE
     Dosage: 60 MILLIGRAM, DAILY
     Route: 065
  32. DULOXETINE [Concomitant]
     Active Substance: DULOXETINE
     Dosage: 60 MILLIGRAM, DAILY
     Route: 048
     Dates: start: 20181005
  33. NAPROXEN [Concomitant]
     Active Substance: NAPROXEN
     Indication: Product used for unknown indication
     Route: 065
  34. NALOXONE HYDROCHLORIDE\TILIDINE HYDROCHLORIDE [Concomitant]
     Active Substance: NALOXONE HYDROCHLORIDE\TILIDINE HYDROCHLORIDE
     Indication: Product used for unknown indication
     Route: 065
  35. NALOXONE HYDROCHLORIDE\TILIDINE HYDROCHLORIDE [Concomitant]
     Active Substance: NALOXONE HYDROCHLORIDE\TILIDINE HYDROCHLORIDE
     Route: 065
  36. NALOXONE HYDROCHLORIDE\TILIDINE HYDROCHLORIDE [Concomitant]
     Active Substance: NALOXONE HYDROCHLORIDE\TILIDINE HYDROCHLORIDE
     Route: 065
  37. ZOPICLONE [Concomitant]
     Active Substance: ZOPICLONE
     Indication: Pain
     Dosage: 7.5 MG, DAILY
     Route: 048
     Dates: start: 20170105
  38. ZOPICLONE [Concomitant]
     Active Substance: ZOPICLONE
     Route: 048
     Dates: start: 20180821
  39. DIMETHINDENE [Concomitant]
     Active Substance: DIMETHINDENE
     Indication: Product used for unknown indication
     Route: 042
     Dates: start: 20190311, end: 20190311
  40. DIMETHINDENE [Concomitant]
     Active Substance: DIMETHINDENE
     Route: 042
     Dates: start: 2018
  41. TRIMIPRAMINE [Concomitant]
     Active Substance: TRIMIPRAMINE
     Indication: Product used for unknown indication
     Route: 065
  42. TRIMIPRAMINE [Concomitant]
     Active Substance: TRIMIPRAMINE
     Route: 065
  43. ACETYLCYSTEINE [Concomitant]
     Active Substance: ACETYLCYSTEINE
     Indication: Product used for unknown indication
     Route: 065
  44. QUETIAPINE [Concomitant]
     Active Substance: QUETIAPINE
     Indication: Product used for unknown indication
     Route: 065
  45. PREGABALIN [Concomitant]
     Active Substance: PREGABALIN
     Indication: Product used for unknown indication
     Route: 065
  46. POLYETHYLENE GLYCOLS [Concomitant]
     Active Substance: POLYETHYLENE GLYCOLS
     Indication: Product used for unknown indication
     Route: 065
  47. POLYETHYLENE GLYCOLS [Concomitant]
     Active Substance: POLYETHYLENE GLYCOLS
     Route: 065
  48. POLYETHYLENE GLYCOLS [Concomitant]
     Active Substance: POLYETHYLENE GLYCOLS
     Route: 065
  49. POLYETHYLENE GLYCOLS [Concomitant]
     Active Substance: POLYETHYLENE GLYCOLS
     Route: 065
  50. POLYETHYLENE GLYCOLS [Concomitant]
     Active Substance: POLYETHYLENE GLYCOLS
     Route: 065
  51. IBUPROFEN [Concomitant]
     Active Substance: IBUPROFEN
     Indication: Migraine
     Route: 048
     Dates: start: 2013
  52. HERBALS [Concomitant]
     Active Substance: HERBALS
     Indication: Product used for unknown indication
     Route: 065
  53. NABIXIMOLS [Concomitant]
     Active Substance: NABIXIMOLS
     Indication: Product used for unknown indication
     Route: 065

REACTIONS (48)
  - Multiple sclerosis [Unknown]
  - Therapeutic product effect decreased [Unknown]
  - Influenza like illness [Recovered/Resolved]
  - Cardiovascular insufficiency [Recovered/Resolved]
  - Diabetes mellitus [Not Recovered/Not Resolved]
  - Loss of consciousness [Recovered/Resolved]
  - Myocardial infarction [Recovered/Resolved]
  - Myalgia [Recovered/Resolved]
  - Hypersensitivity [Unknown]
  - Paraesthesia [Recovered/Resolved]
  - Body temperature increased [Not Recovered/Not Resolved]
  - White blood cell count increased [Recovered/Resolved]
  - Pyrexia [Recovered/Resolved]
  - Dizziness [Recovered/Resolved]
  - C-reactive protein increased [Recovered/Resolved]
  - Back pain [Recovered/Resolved]
  - Blood immunoglobulin G decreased [Recovered/Resolved]
  - Influenza like illness [Recovered/Resolved]
  - Depression [Unknown]
  - Vomiting [Recovered/Resolved]
  - Vaccination failure [Not Recovered/Not Resolved]
  - Infection [Recovered/Resolved]
  - Pain [Unknown]
  - Erythema [Recovering/Resolving]
  - Neuralgia [Recovering/Resolving]
  - Asthenia [Recovered/Resolved]
  - Hypotension [Recovered/Resolved]
  - Nausea [Recovered/Resolved]
  - Intraocular pressure test [Recovered/Resolved]
  - Arthralgia [Recovering/Resolving]
  - Nervousness [Recovering/Resolving]
  - Abnormal behaviour [Recovered/Resolved]
  - Inappropriate schedule of product administration [Unknown]
  - Nasopharyngitis [Recovered/Resolved]
  - Fatigue [Recovered/Resolved]
  - Coronavirus infection [Recovered/Resolved]
  - Migraine [Not Recovered/Not Resolved]
  - Headache [Recovered/Resolved]
  - Pyrexia [Recovered/Resolved]
  - Neuralgia [Recovering/Resolving]
  - Sensory disturbance [Not Recovered/Not Resolved]
  - Flushing [Recovered/Resolved]
  - Nasopharyngitis [Recovered/Resolved]
  - Anxiety [Unknown]
  - Headache [Recovered/Resolved]
  - Vomiting [Recovered/Resolved]
  - Headache [Recovered/Resolved]
  - Neuralgia [Recovering/Resolving]

NARRATIVE: CASE EVENT DATE: 20180305
